FAERS Safety Report 18256835 (Version 1)
Quarter: 2020Q3

REPORT INFORMATION
  Report Type: Spontaneous
  Country: US (occurrence: US)
  Receive Date: 20200910
  Receipt Date: 20200910
  Transmission Date: 20201103
  Serious: No
  Sender: FDA-Public Use
  Company Number: None

PATIENT
  Age: 26 Year
  Sex: Male
  Weight: 92.25 kg

DRUGS (5)
  1. PANTOPRAZOLE 40MG [Concomitant]
     Active Substance: PANTOPRAZOLE SODIUM
  2. SUTENT [Suspect]
     Active Substance: SUNITINIB MALATE
     Indication: MALIGNANT CONNECTIVE TISSUE NEOPLASM
     Route: 048
     Dates: start: 20200131
  3. DESMOPRESSIN 0.1MG [Concomitant]
  4. PREDNISONE 5MG [Concomitant]
     Active Substance: PREDNISONE
  5. IBUPROFEN 800MG [Concomitant]
     Active Substance: IBUPROFEN

REACTIONS (1)
  - Hair colour changes [None]

NARRATIVE: CASE EVENT DATE: 20200910
